FAERS Safety Report 7237845-9 (Version None)
Quarter: 2011Q1

REPORT INFORMATION
  Report Type: 
  Country: None (occurrence: None)
  Receive Date: 20110121
  Receipt Date: 20110112
  Transmission Date: 20110831
  Serious: Yes (Other)
  Sender: FDA-Public Use
  Company Number: US-MYLANLABS-2011S1000868

PATIENT
  Age: 25 Year
  Sex: Female

DRUGS (6)
  1. PHENYTOIN SODIUM CAP [Suspect]
     Indication: GRAND MAL CONVULSION
     Route: 048
  2. TEGRETOL [Concomitant]
  3. MULTIVITAMIN [Concomitant]
  4. ZOLOFT [Concomitant]
  5. ADDEREX [Concomitant]
  6. PHENYTOIN SODIUM CAP [Suspect]
     Route: 048

REACTIONS (2)
  - CONVULSION [None]
  - ANTICONVULSANT DRUG LEVEL BELOW THERAPEUTIC [None]
